FAERS Safety Report 12711511 (Version 2)
Quarter: 2016Q4

REPORT INFORMATION
  Report Type: Report from Study
  Country: None (occurrence: FR)
  Receive Date: 20160902
  Receipt Date: 20161019
  Transmission Date: 20170207
  Serious: Yes (Hospitalization, Other)
  Sender: FDA-Public Use
  Company Number: FR-ABBVIE-16K-056-1717327-00

PATIENT
  Age: 65 Year
  Sex: Female
  Weight: 38 kg

DRUGS (10)
  1. SULFARLEM [Concomitant]
     Active Substance: ANETHOLTRITHION
     Indication: PRODUCT USED FOR UNKNOWN INDICATION
     Dosage: 2-0-2
  2. LEPONEX [Concomitant]
     Active Substance: CLOZAPINE
     Indication: PRODUCT USED FOR UNKNOWN INDICATION
     Dosage: 25 MG 0-0-1
  3. DIFFU-K [Concomitant]
     Active Substance: POTASSIUM CHLORIDE
     Indication: PRODUCT USED FOR UNKNOWN INDICATION
     Dosage: 1-1-1
  4. FRAGMINE [Concomitant]
     Active Substance: DALTEPARIN SODIUM
     Indication: PRODUCT USED FOR UNKNOWN INDICATION
     Dosage: 1-0-0
  5. LEPONEX [Concomitant]
     Active Substance: CLOZAPINE
     Dosage: DOSE INCREASED
  6. EFFEXOR [Concomitant]
     Active Substance: VENLAFAXINE HYDROCHLORIDE
     Indication: PRODUCT USED FOR UNKNOWN INDICATION
     Dosage: 1-0-0
  7. DUODOPA [Suspect]
     Active Substance: CARBIDOPA\LEVODOPA
     Indication: PARKINSON^S DISEASE
     Dosage: CFR OVER 24 HOURS, MD: 12 ML; 6H 14H: 7ML; 14H-21H: 8ML; BOLUS 7ML 4-5 DAYS
     Route: 050
     Dates: start: 20160728
  8. FRESUBIN ORIGINAL FIBRE [Concomitant]
     Indication: PRODUCT USED FOR UNKNOWN INDICATION
     Dates: start: 20160823
  9. VALIUM [Concomitant]
     Active Substance: DIAZEPAM
     Indication: PRODUCT USED FOR UNKNOWN INDICATION
     Dosage: 2-3 TABLETS PER DAY
  10. FRESUBIN ORIGINAL [Concomitant]
     Indication: PRODUCT USED FOR UNKNOWN INDICATION
     Dates: start: 20160823

REACTIONS (11)
  - Device occlusion [Recovered/Resolved]
  - Weight increased [Unknown]
  - Dyskinesia [Unknown]
  - Medical device site nodule [Unknown]
  - Complication associated with device [Unknown]
  - Abdominal pain [Unknown]
  - Akinesia [Unknown]
  - Oedema peripheral [Unknown]
  - Nausea [Unknown]
  - Muscle rigidity [Unknown]
  - Middle insomnia [Unknown]

NARRATIVE: CASE EVENT DATE: 2016
